FAERS Safety Report 12405276 (Version 2)
Quarter: 2016Q3

REPORT INFORMATION
  Report Type: Spontaneous
  Country: NL (occurrence: NL)
  Receive Date: 20160525
  Receipt Date: 20160805
  Transmission Date: 20161109
  Serious: Yes (Other)
  Sender: FDA-Public Use
  Company Number: NL-ASTRAZENECA-2016SE43272

PATIENT
  Age: 606 Month
  Sex: Female

DRUGS (6)
  1. DICLOFENAC [Suspect]
     Active Substance: DICLOFENAC
     Indication: RHEUMATOID ARTHRITIS
     Dosage: 50MG TID
     Route: 048
     Dates: start: 20160315, end: 20160329
  2. OMEPRAZOL [Suspect]
     Active Substance: OMEPRAZOLE
     Indication: GASTRIC DISORDER
     Route: 048
     Dates: end: 20160421
  3. OXYNORM [Concomitant]
     Active Substance: OXYCODONE HYDROCHLORIDE
     Indication: ABDOMINAL PAIN
     Dosage: 10.0MG AS REQUIRED
     Route: 048
  4. MEDI4736 [Suspect]
     Active Substance: DURVALUMAB
     Indication: DUCTAL ADENOCARCINOMA OF PANCREAS
     Route: 042
     Dates: start: 20160329
  5. MEDI4736 [Suspect]
     Active Substance: DURVALUMAB
     Indication: DUCTAL ADENOCARCINOMA OF PANCREAS
     Route: 042
     Dates: start: 20160202, end: 20160202
  6. PARACETAMOL [Concomitant]
     Active Substance: ACETAMINOPHEN
     Indication: ABDOMINAL PAIN
     Dosage: 500.0MG AS REQUIRED
     Route: 048

REACTIONS (1)
  - Acute kidney injury [Recovered/Resolved]

NARRATIVE: CASE EVENT DATE: 20160420
